FAERS Safety Report 10220137 (Version 1)
Quarter: 2014Q2

REPORT INFORMATION
  Report Type: Report from Study
  Country: US (occurrence: US)
  Receive Date: 20140605
  Receipt Date: 20140605
  Transmission Date: 20141212
  Serious: Yes (Death)
  Sender: FDA-Public Use
  Company Number: US-EXELIXIS-CABO-14004361

PATIENT
  Age: 43 Year
  Sex: Male

DRUGS (2)
  1. CABOZANTINIB [Suspect]
     Indication: PRODUCT USED FOR UNKNOWN INDICATION
     Dosage: 140 MG, QD
     Route: 048
     Dates: start: 20140502, end: 2014
  2. LEVOTHYROXINE [Concomitant]

REACTIONS (1)
  - Death [Fatal]
